FAERS Safety Report 20680228 (Version 1)
Quarter: 2022Q2

REPORT INFORMATION
  Report Type: Spontaneous
  Country: US (occurrence: None)
  Receive Date: 20220405
  Receipt Date: 20220405
  Transmission Date: 20220721
  Serious: Yes (Life-Threatening, Hospitalization, Disabling)
  Sender: FDA-Public Use
  Company Number: None

PATIENT
  Age: 30 Day
  Sex: Female
  Weight: 56.25 kg

DRUGS (1)
  1. CIPROFLOXACIN [Suspect]
     Active Substance: CIPROFLOXACIN
     Indication: Infection prophylaxis
     Dosage: FREQUENCY : TWICE A DAY;?
     Route: 048
     Dates: start: 20140214, end: 20140221

REACTIONS (33)
  - Rash [None]
  - Weight decreased [None]
  - Atrophy [None]
  - Asthenia [None]
  - Plantar fasciitis [None]
  - Photophobia [None]
  - Sleep disorder [None]
  - Epstein-Barr virus infection [None]
  - Immune system disorder [None]
  - Small fibre neuropathy [None]
  - Muscle spasms [None]
  - Gait disturbance [None]
  - Tendon rupture [None]
  - Sciatica [None]
  - Pain [None]
  - Arthralgia [None]
  - Neck pain [None]
  - Tinnitus [None]
  - Myositis [None]
  - Bulbar palsy [None]
  - Facial paralysis [None]
  - Paralysis [None]
  - Tendonitis [None]
  - Tachycardia [None]
  - Sleep apnoea syndrome [None]
  - Peroneal nerve palsy [None]
  - Amyotrophic lateral sclerosis [None]
  - Parkinsonism [None]
  - Nightmare [None]
  - Hallucination [None]
  - Intrusive thoughts [None]
  - Attention deficit hyperactivity disorder [None]
  - Memory impairment [None]

NARRATIVE: CASE EVENT DATE: 20140214
